FAERS Safety Report 8595755-9 (Version None)
Quarter: 2012Q3

REPORT INFORMATION
  Report Type: 
  Country: None (occurrence: None)
  Receive Date: 20120815
  Receipt Date: 20120802
  Transmission Date: 20120928
  Serious: Yes (Hospitalization)
  Sender: FDA-Public Use
  Company Number: US-ELI_LILLY_AND_COMPANY-US201208001007

PATIENT
  Sex: Male
  Weight: 69 kg

DRUGS (2)
  1. CISPLATIN [Suspect]
     Indication: NON-SMALL CELL LUNG CANCER
     Dosage: 76 MG/M2, ON DAY 1 EVERY 21 DAYS
     Route: 042
     Dates: start: 20120530
  2. PEMETREXED [Suspect]
     Indication: NON-SMALL CELL LUNG CANCER
     Dosage: 600 MG/M2, ON DAY 1 EVERY 21 DAYS
     Route: 042
     Dates: start: 20120530

REACTIONS (2)
  - DEHYDRATION [None]
  - HYPOKALAEMIA [None]
